FAERS Safety Report 8857814 (Version 3)
Quarter: 2013Q3

REPORT INFORMATION
  Report Type: Spontaneous
  Country: CA (occurrence: CA)
  Receive Date: 20121024
  Receipt Date: 20130712
  Transmission Date: 20140515
  Serious: Yes (Other)
  Sender: FDA-Public Use
  Company Number: CA-ROCHE-1147722

PATIENT
  Age: 45 Year
  Sex: Female

DRUGS (9)
  1. XOLAIR [Suspect]
     Indication: ASTHMA
     Route: 058
     Dates: start: 20120822
  2. XOLAIR [Suspect]
     Route: 065
     Dates: start: 20121212
  3. XOLAIR [Suspect]
     Route: 065
     Dates: start: 20130602
  4. ZENHALE [Concomitant]
  5. SPIRIVA [Concomitant]
  6. OMNARIS [Concomitant]
  7. RANITIDINE [Concomitant]
  8. ALVESCO [Concomitant]
  9. SALBUTAMOL [Concomitant]

REACTIONS (12)
  - Pneumonia [Unknown]
  - Back pain [Unknown]
  - Musculoskeletal chest pain [Unknown]
  - Muscle spasms [Unknown]
  - Dyspnoea [Unknown]
  - Sinusitis [Not Recovered/Not Resolved]
  - Hypersensitivity [Unknown]
  - Pharyngitis [Not Recovered/Not Resolved]
  - Nasopharyngitis [Not Recovered/Not Resolved]
  - Skin striae [Unknown]
  - Lower respiratory tract infection [Unknown]
  - Blood pressure systolic increased [Unknown]
